APPROVED DRUG PRODUCT: NAFCILLIN SODIUM
Active Ingredient: NAFCILLIN SODIUM
Strength: EQ 10GM BASE/VIAL
Dosage Form/Route: INJECTABLE;INJECTION
Application: A062527 | Product #004
Applicant: SANDOZ INC
Approved: Aug 2, 1984 | RLD: No | RS: No | Type: DISCN